FAERS Safety Report 4349407-1 (Version None)
Quarter: 2004Q2

REPORT INFORMATION
  Report Type: 
  Country: None (occurrence: None)
  Receive Date: 20040426
  Receipt Date: 20040415
  Transmission Date: 20050107
  Serious: Yes (Other)
  Sender: FDA-Public Use
  Company Number: GB-JNJFOC-20040301164

PATIENT
  Age: 34 Year
  Sex: Male

DRUGS (1)
  1. CONCERTA [Suspect]
     Dosage: 90 MG, IN 1 DAY, ORAL
     Route: 048
     Dates: start: 20031130, end: 20031201

REACTIONS (4)
  - CHEST DISCOMFORT [None]
  - DYSPNOEA [None]
  - HEART RATE INCREASED [None]
  - PALPITATIONS [None]
